FAERS Safety Report 10178254 (Version 1)
Quarter: 2014Q2

REPORT INFORMATION
  Report Type: Report from Study
  Country: BR (occurrence: BR)
  Receive Date: 20140519
  Receipt Date: 20140519
  Transmission Date: 20141212
  Serious: Yes (Other)
  Sender: FDA-Public Use
  Company Number: PHHY2014BR059003

PATIENT
  Sex: Female

DRUGS (6)
  1. EXJADE [Suspect]
     Indication: IRON OVERLOAD
     Dosage: 2 DF, A DAY
  2. OXCARBAZEPINE [Suspect]
     Indication: CONVULSION
     Dosage: 4 DF, A DAY
  3. TOPIRAMATO [Suspect]
     Indication: CONVULSION
     Dosage: 4 DF, A DAY
  4. CLONAZEPAM [Suspect]
     Indication: CONVULSION
     Dosage: 2 DF, A DAY
  5. FOLIC ACID [Concomitant]
     Indication: SICKLE CELL ANAEMIA
     Dosage: 1 DF, DAY YES DAY NO
  6. PYRIDOXINE [Concomitant]
     Dosage: 2 DF, A DAY

REACTIONS (6)
  - Convulsion [Not Recovered/Not Resolved]
  - Attention deficit/hyperactivity disorder [Not Recovered/Not Resolved]
  - Sinusitis [Not Recovered/Not Resolved]
  - Hunger [Unknown]
  - Memory impairment [Not Recovered/Not Resolved]
  - Somnolence [Unknown]
